FAERS Safety Report 4686357-5 (Version None)
Quarter: 2005Q2

REPORT INFORMATION
  Report Type: 
  Country: None (occurrence: None)
  Receive Date: 20050606
  Receipt Date: 20050523
  Transmission Date: 20051028
  Serious: Yes (Other)
  Sender: FDA-Public Use
  Company Number: 2005078889

PATIENT
  Sex: Male
  Weight: 189.6036 kg

DRUGS (10)
  1. CELEBREX [Suspect]
     Indication: OSTEOARTHRITIS
     Dosage: 200 MG (200 MG, 1 IN 1 D), ORAL
     Route: 048
  2. NITROSTAT [Suspect]
     Indication: ANGINA PECTORIS
     Dosage: SUBLINGUAL
     Route: 060
  3. GLUCOPHAGE (METOFIMIN HYDROCHLORIDE) [Concomitant]
  4. ASPIRIN [Concomitant]
  5. PAXIL [Concomitant]
  6. SAW PALMETTO (SAW PALMETTO) [Concomitant]
  7. GINKO BILOBA (GINKO GILOBA) [Concomitant]
  8. MULTIVITMAINS, PLAIN (MULTIVITAMINS, PLAIN) [Concomitant]
  9. ULTRAM [Concomitant]
  10. BUTALBITAL, ACETAMINOPHEN + CAFFEINE (BUTALITAL, CAFFEINE, PARACETAMOL [Concomitant]

REACTIONS (4)
  - ANGINA PECTORIS [None]
  - JOINT SWELLING [None]
  - ROTATOR CUFF SYNDROME [None]
  - WEIGHT DECREASED [None]
